FAERS Safety Report 12756418 (Version 3)
Quarter: 2018Q4

REPORT INFORMATION
  Report Type: Spontaneous
  Country: US (occurrence: US)
  Receive Date: 20160916
  Receipt Date: 20181101
  Transmission Date: 20190204
  Serious: No
  Sender: FDA-Public Use
  Company Number: US-ASTRAZENECA-2016SE86926

PATIENT
  Age: 29188 Day
  Sex: Female
  Weight: 56.2 kg

DRUGS (4)
  1. NEXIUM [Suspect]
     Active Substance: ESOMEPRAZOLE MAGNESIUM
     Indication: EROSIVE OESOPHAGITIS
     Dosage: DAILY
     Route: 048
  2. MAGNESIUM [Concomitant]
     Active Substance: MAGNESIUM
     Dosage: 800 MG A DAY
  3. NEXIUM [Suspect]
     Active Substance: ESOMEPRAZOLE MAGNESIUM
     Indication: DYSPEPSIA
     Dosage: DAILY
     Route: 048
  4. ONGLYZA [Suspect]
     Active Substance: SAXAGLIPTIN HYDROCHLORIDE
     Indication: TYPE 2 DIABETES MELLITUS
     Route: 048
     Dates: start: 20180809, end: 20180823

REACTIONS (26)
  - Head injury [Not Recovered/Not Resolved]
  - Balance disorder [Not Recovered/Not Resolved]
  - Osteoporosis [Not Recovered/Not Resolved]
  - Dysphonia [Recovered/Resolved]
  - Pain in extremity [Not Recovered/Not Resolved]
  - Muscular weakness [Unknown]
  - Ulcer [Unknown]
  - Dizziness [Recovered/Resolved]
  - Tremor [Not Recovered/Not Resolved]
  - Bone pain [Recovered/Resolved]
  - Diarrhoea [Recovered/Resolved]
  - Abdominal discomfort [Unknown]
  - Gait inability [Recovered/Resolved]
  - Jaw disorder [Unknown]
  - Magnesium deficiency [Not Recovered/Not Resolved]
  - Eye contusion [Not Recovered/Not Resolved]
  - Feeding disorder [Recovered/Resolved]
  - Feeling abnormal [Unknown]
  - Osteopenia [Not Recovered/Not Resolved]
  - Body height decreased [Unknown]
  - Loss of consciousness [Not Recovered/Not Resolved]
  - Blood pressure fluctuation [Recovered/Resolved]
  - Heart rate irregular [Recovered/Resolved]
  - Stress [Unknown]
  - Hypokinesia [Recovered/Resolved]
  - Myalgia [Recovered/Resolved]

NARRATIVE: CASE EVENT DATE: 20160809
